FAERS Safety Report 7829610-6 (Version None)
Quarter: 2011Q4

REPORT INFORMATION
  Report Type: 
  Country: None (occurrence: None)
  Receive Date: 20111021
  Receipt Date: 20110921
  Transmission Date: 20120403
  Serious: No
  Sender: FDA-Public Use
  Company Number: AU-AMGEN-AUSSP2011046838

PATIENT
  Age: 41 Year
  Sex: Female
  Weight: 71.8 kg

DRUGS (3)
  1. BETAMETHASONE VALERATE [Concomitant]
     Indication: PSORIASIS
     Dosage: UNK
     Dates: start: 20100928
  2. ENBREL [Suspect]
     Dosage: 50 MG, 2X/WEEK
     Route: 058
     Dates: start: 20101109, end: 20101207
  3. ENBREL [Suspect]
     Indication: PSORIASIS
     Dosage: 50 MG, 2X/WEEK
     Route: 058
     Dates: start: 20101109, end: 20101207

REACTIONS (1)
  - SEROLOGY ABNORMAL [None]
